FAERS Safety Report 11874598 (Version 1)
Quarter: 2015Q4

REPORT INFORMATION
  Report Type: Spontaneous
  Country: FR (occurrence: FR)
  Receive Date: 20151229
  Receipt Date: 20151229
  Transmission Date: 20160305
  Serious: Yes (Hospitalization)
  Sender: FDA-Public Use
  Company Number: FR-ROCHE-1685226

PATIENT
  Age: 67 Year
  Sex: Male

DRUGS (16)
  1. ARACYTINE [Suspect]
     Active Substance: CYTARABINE
     Route: 042
  2. CARBOPLATIN HOSPIRA [Suspect]
     Active Substance: CARBOPLATIN
     Indication: DIFFUSE LARGE B-CELL LYMPHOMA
     Route: 042
     Dates: start: 20151105, end: 20151105
  3. LEDERFOLINE [Concomitant]
     Active Substance: LEUCOVORIN CALCIUM
  4. ZYLORIC [Concomitant]
     Active Substance: ALLOPURINOL
  5. NEORECORMON [Concomitant]
     Active Substance: ERYTHROPOIETIN
     Route: 065
  6. MABTHERA [Suspect]
     Active Substance: RITUXIMAB
     Route: 042
  7. DEXAMETHASONE. [Suspect]
     Active Substance: DEXAMETHASONE
     Route: 042
  8. ARACYTINE [Suspect]
     Active Substance: CYTARABINE
     Indication: DIFFUSE LARGE B-CELL LYMPHOMA
     Route: 042
     Dates: start: 20151105, end: 20151106
  9. BACTRIM [Concomitant]
     Active Substance: SULFAMETHOXAZOLE\TRIMETHOPRIM
     Route: 065
  10. ZELITREX [Concomitant]
     Active Substance: VALACYCLOVIR HYDROCHLORIDE
  11. DEXAMETHASONE. [Suspect]
     Active Substance: DEXAMETHASONE
     Indication: DIFFUSE LARGE B-CELL LYMPHOMA
     Route: 042
     Dates: start: 20151105, end: 20151109
  12. INNOHEP [Concomitant]
     Active Substance: TINZAPARIN SODIUM
  13. BISOCE [Concomitant]
     Active Substance: BISOPROLOL
  14. MABTHERA [Suspect]
     Active Substance: RITUXIMAB
     Indication: DIFFUSE LARGE B-CELL LYMPHOMA
     Route: 042
     Dates: start: 20151105, end: 20151105
  15. CARBOPLATIN HOSPIRA [Suspect]
     Active Substance: CARBOPLATIN
     Route: 042
  16. CHIBRO CADRON [Concomitant]
     Active Substance: DEXAMETHASONE SODIUM PHOSPHATE\NEOMYCIN SULFATE

REACTIONS (1)
  - Cerebellar ataxia [Recovering/Resolving]
